FAERS Safety Report 18930278 (Version 3)
Quarter: 2021Q2

REPORT INFORMATION
  Report Type: Spontaneous
  Country: US (occurrence: US)
  Receive Date: 20210224
  Receipt Date: 20210402
  Transmission Date: 20210717
  Serious: No
  Sender: FDA-Public Use
  Company Number: US-JNJFOC-20210233597

PATIENT
  Age: 35 Year
  Sex: Male

DRUGS (2)
  1. CABOTEGRAVIR [Suspect]
     Active Substance: CABOTEGRAVIR
     Indication: HIV INFECTION
     Route: 030
  2. RILPIVIRINE [Suspect]
     Active Substance: RILPIVIRINE
     Indication: HIV INFECTION
     Dosage: UNK
     Route: 030

REACTIONS (6)
  - Swollen tongue [Recovered/Resolved]
  - Sciatica [Not Recovered/Not Resolved]
  - Hypersensitivity [Unknown]
  - Weight increased [Not Recovered/Not Resolved]
  - Rash pruritic [Not Recovered/Not Resolved]
  - Lip swelling [Recovered/Resolved]

NARRATIVE: CASE EVENT DATE: 202102
